FAERS Safety Report 24904295 (Version 1)
Quarter: 2025Q1

REPORT INFORMATION
  Report Type: Spontaneous
  Country: IN (occurrence: IN)
  Receive Date: 20250130
  Receipt Date: 20250130
  Transmission Date: 20250408
  Serious: Yes (Hospitalization)
  Sender: STRIDES
  Company Number: None

PATIENT
  Age: 20 Year
  Sex: Male

DRUGS (12)
  1. PREDNISOLONE [Suspect]
     Active Substance: PREDNISOLONE
     Indication: Lepromatous leprosy
     Route: 065
  2. PREDNISOLONE [Suspect]
     Active Substance: PREDNISOLONE
     Indication: Type 2 lepra reaction
  3. DAPSONE [Concomitant]
     Active Substance: DAPSONE
     Indication: Lepromatous leprosy
     Route: 065
  4. DAPSONE [Concomitant]
     Active Substance: DAPSONE
     Indication: Type 2 lepra reaction
     Route: 065
  5. CLOFAZIMINE [Concomitant]
     Active Substance: CLOFAZIMINE
     Indication: Lepromatous leprosy
     Route: 065
  6. CLOFAZIMINE [Concomitant]
     Active Substance: CLOFAZIMINE
     Indication: Type 2 lepra reaction
     Route: 065
  7. RIFAMPIN [Concomitant]
     Active Substance: RIFAMPIN
     Indication: Lepromatous leprosy
     Route: 065
  8. RIFAMPIN [Concomitant]
     Active Substance: RIFAMPIN
     Indication: Type 2 lepra reaction
  9. THALIDOMIDE [Concomitant]
     Active Substance: THALIDOMIDE
     Indication: Lepromatous leprosy
     Route: 065
  10. THALIDOMIDE [Concomitant]
     Active Substance: THALIDOMIDE
     Indication: Type 2 lepra reaction
  11. OLANZAPINE [Concomitant]
     Active Substance: OLANZAPINE
     Indication: Mania
     Route: 065
  12. VALPROATE [Concomitant]
     Active Substance: VALPROIC ACID
     Indication: Mania
     Route: 065

REACTIONS (4)
  - Adrenal insufficiency [Unknown]
  - Hypertension [Unknown]
  - Steroid diabetes [Unknown]
  - Cushing^s syndrome [Unknown]
